FAERS Safety Report 8607657-X (Version None)
Quarter: 2012Q3

REPORT INFORMATION
  Report Type: 
  Country: None (occurrence: None)
  Receive Date: 20120809
  Receipt Date: 20120809
  Transmission Date: 20120928
  Serious: No
  Sender: FDA-Public Use
  Company Number: None

PATIENT
  Sex: Female
  Weight: 88.8 kg

DRUGS (1)
  1. SODIUM FERRIC GLUCONATE [Suspect]
     Dosage: 125 MG ONCE IV
     Route: 042
     Dates: start: 20111012, end: 20111012

REACTIONS (3)
  - JOINT SWELLING [None]
  - MUSCLE TIGHTNESS [None]
  - CHEST DISCOMFORT [None]
